FAERS Safety Report 9474175 (Version 1)
Quarter: 2013Q3

REPORT INFORMATION
  Report Type: Spontaneous
  Country: IT (occurrence: IT)
  Receive Date: 20130823
  Receipt Date: 20130823
  Transmission Date: 20140515
  Serious: Yes (Other)
  Sender: FDA-Public Use
  Company Number: IT-WATSON-2013-14472

PATIENT
  Age: 79 Year
  Sex: Female

DRUGS (1)
  1. DEXAMETHASONE (UNKNOWN) [Suspect]
     Indication: RETINAL VEIN OCCLUSION
     Dosage: 0.7 MG, SINGLE

REACTIONS (2)
  - Macular hole [Not Recovered/Not Resolved]
  - Retinal disorder [Not Recovered/Not Resolved]
